FAERS Safety Report 7362067-0 (Version None)
Quarter: 2011Q1

REPORT INFORMATION
  Report Type: 
  Country: None (occurrence: None)
  Receive Date: 20110318
  Receipt Date: 20110315
  Transmission Date: 20110831
  Serious: Yes (Death)
  Sender: FDA-Public Use
  Company Number: FR-PFIZER INC-2008025318

PATIENT
  Age: 73 Year
  Sex: Female

DRUGS (6)
  1. ALDACTONE [Suspect]
     Dosage: UNK
     Route: 048
     Dates: start: 20070101
  2. ATENOLOL [Suspect]
     Route: 048
     Dates: start: 20040101
  3. ACTOS [Suspect]
     Dosage: DAILY
     Route: 048
     Dates: start: 20070827
  4. PLAVIX [Suspect]
     Dosage: 1DF,DAILY
     Route: 002
     Dates: start: 20040101
  5. COAPROVEL [Suspect]
     Dosage: 1DF,DAILY
     Route: 048
     Dates: start: 20070101
  6. INSULIN [Suspect]
     Indication: TYPE 1 DIABETES MELLITUS
     Dosage: 70 UI,DAILY
     Route: 048
     Dates: start: 19940101

REACTIONS (1)
  - SUDDEN DEATH [None]
